FAERS Safety Report 5065242-3 (Version None)
Quarter: 2006Q3

REPORT INFORMATION
  Report Type: 
  Country: None (occurrence: None)
  Receive Date: 20060707
  Receipt Date: 20060421
  Transmission Date: 20061208
  Serious: Yes (Hospitalization)
  Sender: FDA-Public Use
  Company Number: SUS1-2006-00465

PATIENT
  Age: 72 Year
  Sex: Female

DRUGS (7)
  1. PENTASA [Suspect]
     Indication: INFLAMMATORY BOWEL DISEASE
     Dosage: 22250 MG DAILY, ORAL
     Route: 048
     Dates: start: 20051110, end: 20060126
  2. PYRIDOXAL PHOSPHATE (PYRIDOXAL PHOSPHATE) [Concomitant]
  3. RIFAMPCIIN (RIFAMPICIN) [Concomitant]
  4. ISONIAZID [Concomitant]
  5. ETHAMBUTOL (ETHAMBUTOL) [Concomitant]
  6. PYRAZINAMIDE [Concomitant]
  7. PROPYLTHIOURACIL [Concomitant]

REACTIONS (3)
  - ABDOMINAL PAIN [None]
  - DIARRHOEA [None]
  - HAEMATOCHEZIA [None]
